FAERS Safety Report 6327419-6 (Version None)
Quarter: 2009Q3

REPORT INFORMATION
  Report Type: 
  Country: None (occurrence: None)
  Receive Date: 20090825
  Receipt Date: 20090813
  Transmission Date: 20100115
  Serious: Yes (Death)
  Sender: FDA-Public Use
  Company Number: US-PFIZER INC-2009255885

PATIENT
  Sex: Male
  Weight: 122.45 kg

DRUGS (17)
  1. NEURONTIN [Suspect]
     Indication: DIABETIC NEUROPATHY
  2. DARVOCET [Concomitant]
  3. GLUCOPHAGE [Concomitant]
  4. LANTUS [Concomitant]
  5. LISINOPRIL [Concomitant]
  6. TENORMIN [Concomitant]
  7. MUCINEX [Concomitant]
  8. ALDACTONE [Concomitant]
  9. ACETYLSALICYLIC ACID [Concomitant]
  10. NITROGLYCERIN [Concomitant]
  11. PRILOSEC [Concomitant]
  12. CLARITIN [Concomitant]
  13. ALBUTEROL [Concomitant]
  14. REQUIP [Concomitant]
  15. ZOCOR [Concomitant]
  16. NIACIN [Concomitant]
  17. CALCIUM [Concomitant]

REACTIONS (1)
  - DEATH [None]
